FAERS Safety Report 9820925 (Version 2)
Quarter: 2014Q2

REPORT INFORMATION
  Report Type: Spontaneous
  Country: US (occurrence: US)
  Receive Date: 20140116
  Receipt Date: 20140402
  Transmission Date: 20141212
  Serious: Yes (Hospitalization)
  Sender: FDA-Public Use
  Company Number: US-B.I. PHARMACEUTICALS,INC./RIDGEFIELD-2014-BI-01102BP

PATIENT
  Age: 70 Year
  Sex: Male
  Weight: 113.4 kg

DRUGS (18)
  1. PRADAXA [Suspect]
     Indication: ATRIAL FIBRILLATION
     Dosage: 300 MG
     Route: 065
     Dates: start: 20110511, end: 20120425
  2. REMERON [Concomitant]
     Dosage: 45 MG
     Route: 065
  3. AMBIEN [Concomitant]
     Dosage: 10 MG
     Route: 065
  4. ALAVERT [Concomitant]
     Dosage: 10 MG
     Route: 065
  5. CARDIZEM [Concomitant]
     Dosage: 120 MG
     Route: 065
  6. TYLENOL [Concomitant]
     Route: 065
  7. DIGOXIN [Concomitant]
     Dosage: 0.25 MG
     Route: 065
  8. METHIMAZOLE [Concomitant]
     Dosage: 5 MG
     Route: 065
  9. IRON [Concomitant]
     Route: 065
  10. CYMBALTA [Concomitant]
     Dosage: 90 MG
     Route: 065
  11. NIASPAN [Concomitant]
     Route: 065
  12. CALCITRON [Concomitant]
     Dosage: 0.25 MG
     Route: 065
  13. ASPIRIN [Concomitant]
     Dosage: 81 MG
     Route: 065
  14. VITAMIN D [Concomitant]
     Dosage: 3000 MG
     Route: 065
  15. GLIMEPIRIDE [Concomitant]
     Dosage: 2 MG
     Route: 065
  16. COREG [Concomitant]
     Dosage: 25 MG
     Route: 065
  17. LOVAZA [Concomitant]
     Route: 065
  18. LISINOPRIL [Concomitant]
     Dosage: 2.5 NR
     Route: 065

REACTIONS (6)
  - Haematochezia [Unknown]
  - Anaemia [Unknown]
  - Epistaxis [Unknown]
  - Increased tendency to bruise [Unknown]
  - Thrombocytopenia [Unknown]
  - Coagulopathy [Unknown]
